FAERS Safety Report 5070964-4 (Version None)
Quarter: 2006Q3

REPORT INFORMATION
  Report Type: 
  Country: None (occurrence: None)
  Receive Date: 20060714
  Receipt Date: 20060425
  Transmission Date: 20061208
  Serious: No
  Sender: FDA-Public Use
  Company Number: 2006SP001821

PATIENT
  Age: 51 Year
  Sex: Female
  Weight: 92.9874 kg

DRUGS (2)
  1. LUNESTA [Suspect]
     Indication: INSOMNIA
     Dosage: 3 MG ; HS;ORAL
     Route: 048
     Dates: start: 20060201
  2. CELEBREX [Concomitant]

REACTIONS (1)
  - ALOPECIA [None]
